FAERS Safety Report 14707316 (Version 1)
Quarter: 2018Q2

REPORT INFORMATION
  Report Type: Spontaneous
  Country: US (occurrence: US)
  Receive Date: 20180403
  Receipt Date: 20180403
  Transmission Date: 20180711
  Serious: No
  Sender: FDA-Public Use
  Company Number: US-GLENMARK PHARMACEUTICALS-2018GMK032783

PATIENT

DRUGS (1)
  1. LIDOCAINE OINTMENT USP 5% [Suspect]
     Active Substance: LIDOCAINE
     Indication: NEURALGIA
     Dosage: TOPICAL ON BOTH FEET AND TOES
     Route: 061
     Dates: start: 2016

REACTIONS (2)
  - Drug effective for unapproved indication [Unknown]
  - No adverse event [Unknown]
